FAERS Safety Report 5002746-3 (Version None)
Quarter: 2006Q2

REPORT INFORMATION
  Report Type: 
  Country: None (occurrence: None)
  Receive Date: 20060512
  Receipt Date: 20060505
  Transmission Date: 20061013
  Serious: Yes (Disabling, Other)
  Sender: FDA-Public Use
  Company Number: 2006060572

PATIENT
  Age: 76 Year
  Sex: Female
  Weight: 54.4316 kg

DRUGS (2)
  1. XANAX [Suspect]
     Indication: ANXIETY
     Dosage: 3 MG (1 MG, EVERY 8 HOURS)
  2. ALPRAZOLAM [Suspect]
     Indication: ANXIETY
     Dosage: 3 MG (1 MG, EVERY 8 HOURS)
     Dates: start: 20060101, end: 20060101

REACTIONS (7)
  - ABASIA [None]
  - BACK INJURY [None]
  - BLOOD SODIUM DECREASED [None]
  - DYSSTASIA [None]
  - MUSCLE STRAIN [None]
  - OEDEMA PERIPHERAL [None]
  - SKIN TIGHTNESS [None]
